FAERS Safety Report 5541444-4 (Version None)
Quarter: 2007Q4

REPORT INFORMATION
  Report Type: 
  Country: None (occurrence: None)
  Receive Date: 20071210
  Receipt Date: 20071127
  Transmission Date: 20080405
  Serious: Yes (Other)
  Sender: FDA-Public Use
  Company Number: US-BAYER-US-2007-041776

PATIENT
  Age: 45 Year
  Sex: Female
  Weight: 71 kg

DRUGS (3)
  1. MIRENA [Suspect]
     Indication: CONTRACEPTION
     Route: 015
     Dates: start: 20070918, end: 20071006
  2. LISINOPRIL [Concomitant]
     Indication: HYPERTENSION
     Route: 048
  3. LEXAPRO [Concomitant]
     Indication: POST-TRAUMATIC STRESS DISORDER
     Route: 048

REACTIONS (8)
  - DYSMENORRHOEA [None]
  - FLANK PAIN [None]
  - HAEMORRHAGE [None]
  - METRORRHAGIA [None]
  - PELVIC INFLAMMATORY DISEASE [None]
  - PELVIC PAIN [None]
  - PYREXIA [None]
  - VAGINAL HAEMORRHAGE [None]
